FAERS Safety Report 18415536 (Version 1)
Quarter: 2020Q4

REPORT INFORMATION
  Report Type: Spontaneous
  Country: US (occurrence: US)
  Receive Date: 20201021
  Receipt Date: 20201021
  Transmission Date: 20210114
  Serious: No
  Sender: FDA-Public Use
  Company Number: None

PATIENT
  Age: 79 Year
  Sex: Female
  Weight: 53.52 kg

DRUGS (5)
  1. ATORVASTATIN [Concomitant]
     Active Substance: ATORVASTATIN
  2. VITAMIN D [Concomitant]
     Active Substance: VITAMIN D NOS
  3. MULTI VITAMIN [Concomitant]
     Active Substance: VITAMINS
  4. CALCIUM [Concomitant]
     Active Substance: CALCIUM
  5. ALENDRONATE [Suspect]
     Active Substance: ALENDRONATE SODIUM
     Indication: OSTEOARTHRITIS
     Dosage: ?          QUANTITY:1 DF DOSAGE FORM;?
     Route: 048
     Dates: start: 20200208, end: 20200913

REACTIONS (12)
  - Bone pain [None]
  - Neck pain [None]
  - Headache [None]
  - Arthralgia [None]
  - Lip pain [None]
  - Toothache [None]
  - Palatal disorder [None]
  - Paraesthesia oral [None]
  - Tongue ulceration [None]
  - Dysgeusia [None]
  - Back pain [None]
  - Oropharyngeal pain [None]

NARRATIVE: CASE EVENT DATE: 20200809
